FAERS Safety Report 7839747 (Version 5)
Quarter: 2015Q1

REPORT INFORMATION
  Report Type: Spontaneous
  Country: US (occurrence: US)
  Receive Date: 20110303
  Receipt Date: 20150204
  Transmission Date: 20150721
  Serious: Yes (Hospitalization, Other)
  Sender: FDA-Public Use
  Company Number: US-BAYER-2011-019297

PATIENT
  Age: 48 Year
  Sex: Female
  Weight: 84 kg

DRUGS (16)
  1. YAZ [Suspect]
     Active Substance: DROSPIRENONE\ETHINYL ESTRADIOL
     Indication: MENORRHAGIA
     Dosage: UNK
     Dates: start: 20081223, end: 20090204
  2. TRIAMTERENE AND HYDROCHLOROTHIAZIDE [Concomitant]
     Active Substance: HYDROCHLOROTHIAZIDE\TRIAMTERENE
     Dosage: UNK
     Dates: start: 2008, end: 2009
  3. OMEGA 3 [Concomitant]
     Active Substance: OMEGA-3 FATTY ACIDS
  4. METOPROLOL [Concomitant]
     Active Substance: METOPROLOL
     Indication: BLOOD PRESSURE ABNORMAL
     Dosage: UNK
     Dates: start: 200806, end: 2009
  5. POTASSIUM [Concomitant]
     Active Substance: POTASSIUM
  6. CITALOPRAM [Concomitant]
     Active Substance: CITALOPRAM HYDROBROMIDE
  7. ZOLOFT [Concomitant]
     Active Substance: SERTRALINE HYDROCHLORIDE
  8. NIASPAN [Concomitant]
     Active Substance: NIACIN
  9. FERROUS SULFATE [Concomitant]
     Active Substance: FERROUS SULFATE\FERROUS SULFATE, DRIED
  10. SEPTRA [Concomitant]
     Active Substance: SULFAMETHOXAZOLE\TRIMETHOPRIM
     Indication: CELLULITIS
  11. TRIAMTERENE. [Concomitant]
     Active Substance: TRIAMTERENE
  12. MAXZIDE [Concomitant]
     Active Substance: HYDROCHLOROTHIAZIDE\TRIAMTERENE
  13. VYTORIN [Concomitant]
     Active Substance: EZETIMIBE\SIMVASTATIN
  14. LIPITOR [Concomitant]
     Active Substance: ATORVASTATIN CALCIUM
     Dosage: UNK
     Dates: start: 2008, end: 2010
  15. KLOR-CON [Concomitant]
     Active Substance: POTASSIUM CHLORIDE
     Dosage: UNK
     Dates: start: 2008, end: 2009
  16. LISINOPRIL. [Concomitant]
     Active Substance: LISINOPRIL

REACTIONS (11)
  - Myocardial infarction [Unknown]
  - Chest discomfort [Unknown]
  - Syncope [Unknown]
  - Circulatory collapse [Unknown]
  - Injury [Unknown]
  - Infection susceptibility increased [None]
  - General physical health deterioration [Unknown]
  - Chest pain [Unknown]
  - Pain [Unknown]
  - Staphylococcus test positive [Unknown]
  - Arterial thrombosis [Unknown]

NARRATIVE: CASE EVENT DATE: 20090204
